FAERS Safety Report 6379292-8 (Version None)
Quarter: 2009Q3

REPORT INFORMATION
  Report Type: 
  Country: None (occurrence: None)
  Receive Date: 20090923
  Receipt Date: 20090923
  Transmission Date: 20100115
  Serious: Yes (Hospitalization)
  Sender: FDA-Public Use
  Company Number: None

PATIENT
  Age: 67 Year
  Sex: Female
  Weight: 61.4 kg

DRUGS (20)
  1. TRIMETHOPRIM + SULFAMETHOXAZOLE [Suspect]
     Indication: ANTIFUNGAL PROPHYLAXIS
     Dosage: 400MG/80MG PO DAILY
     Route: 048
     Dates: start: 20090607, end: 20090612
  2. TRIMETHOPRIM + SULFAMETHOXAZOLE [Suspect]
     Indication: ANTIFUNGAL PROPHYLAXIS
     Dosage: 400MG/80MG PO DAILY
     Route: 048
     Dates: start: 20090618, end: 20090622
  3. TACROLIMUS [Concomitant]
  4. ACYCLOVIR [Concomitant]
  5. NPH INSULIN [Concomitant]
  6. METHYLPREDNISOLONE 4MG TAB [Concomitant]
  7. PREDNISONE [Concomitant]
  8. DOCUSATE [Concomitant]
  9. BISACODYL [Concomitant]
  10. LANSOPRAZOLE [Concomitant]
  11. OXYCODONE HCL AND ACETAMINOPHEN [Concomitant]
  12. MG OXIDE [Concomitant]
  13. HYDROMORPHONE [Concomitant]
  14. URSOCOL [Concomitant]
  15. CALCIUM CARBONATE [Concomitant]
  16. AZATHIOPRINE [Concomitant]
  17. METOPROLOL [Concomitant]
  18. RANITIDINE [Concomitant]
  19. MEROPENEM [Concomitant]
  20. NYSTATIN [Concomitant]

REACTIONS (1)
  - WHITE BLOOD CELL COUNT DECREASED [None]
